FAERS Safety Report 8353370-6 (Version None)
Quarter: 2012Q2

REPORT INFORMATION
  Report Type: 
  Country: None (occurrence: None)
  Receive Date: 20120511
  Receipt Date: 20120504
  Transmission Date: 20120825
  Serious: Yes (Death)
  Sender: FDA-Public Use
  Company Number: GB-FRI-1000030424

PATIENT
  Age: 7 Decade
  Sex: Female

DRUGS (4)
  1. RISPERIDONE [Concomitant]
  2. DIAZEPAM [Concomitant]
  3. MEMANTINE HCL [Suspect]
     Indication: DEMENTIA
     Dosage: 20 MG
     Route: 048
  4. TRAZODONE HCL [Concomitant]

REACTIONS (2)
  - OFF LABEL USE [None]
  - INFECTION [None]
